FAERS Safety Report 9189577 (Version 2)
Quarter: 2013Q2

REPORT INFORMATION
  Report Type: Spontaneous
  Country: US (occurrence: US)
  Receive Date: 20130326
  Receipt Date: 20130522
  Transmission Date: 20140414
  Serious: Yes (Death)
  Sender: FDA-Public Use
  Company Number: US-ELI_LILLY_AND_COMPANY-US201108008054

PATIENT
  Sex: Male
  Weight: 84.35 kg

DRUGS (17)
  1. FORTEO [Suspect]
     Indication: OSTEOPOROSIS
     Dosage: 20 UG, QD
     Route: 058
     Dates: start: 20110801
  2. FORTEO [Suspect]
     Dosage: 20 UG, QD
     Route: 058
  3. CYMBALTA [Concomitant]
     Dosage: 60 MG, QD
     Route: 048
     Dates: start: 20110815
  4. TRAMADOL HCL [Concomitant]
     Dosage: 50 MG, Q4-6H
     Route: 048
     Dates: start: 20110225
  5. RESTASIS [Concomitant]
     Dosage: 2 DF, BID
     Route: 047
     Dates: start: 20110516
  6. LUMIGAN [Concomitant]
     Dosage: USE AS DIRECTED
     Dates: start: 20110516
  7. COMBIGAN [Concomitant]
     Dosage: USE AS DIRECTED
     Dates: start: 20110516
  8. SYMBICORT [Concomitant]
     Dosage: 2 PUFFS, BID
     Dates: start: 20110225
  9. FOLIC ACID [Concomitant]
     Dosage: 1 DF, QD
     Dates: start: 20110225
  10. VITAMIN B12 [Concomitant]
     Dosage: UNK, MONTHLY (1/M)
     Dates: start: 20110225
  11. GLUCOSAMINE + CHONDROITIN          /01625901/ [Concomitant]
     Dosage: UNK, QD
     Dates: start: 20110225
  12. MULTIVITAMIN [Concomitant]
     Dosage: 1 DF, QD
     Dates: start: 20110225
  13. NABUMETONE [Concomitant]
     Dosage: 250 MG, BID
     Route: 048
     Dates: start: 20110225
  14. GABAPENTIN [Concomitant]
     Indication: PAIN
     Dosage: 300 MG, QD
  15. GABAPENTIN [Concomitant]
     Dosage: 300 MG, BID
  16. GABAPENTIN [Concomitant]
     Dosage: 600 MG, BID X 1 MONTH
  17. GABAPENTIN [Concomitant]
     Dosage: 900 MG, BID

REACTIONS (6)
  - Death [Fatal]
  - Sensation of heaviness [Unknown]
  - Fatigue [Unknown]
  - Muscular weakness [Unknown]
  - Asthenia [Unknown]
  - Injection site pain [Unknown]
